FAERS Safety Report 6645428-4 (Version None)
Quarter: 2010Q1

REPORT INFORMATION
  Report Type: 
  Country: None (occurrence: None)
  Receive Date: 20100322
  Receipt Date: 20100311
  Transmission Date: 20100710
  Serious: Yes (Hospitalization)
  Sender: FDA-Public Use
  Company Number: US-ASTRAZENECA-2010SE10602

PATIENT
  Age: 23657 Day
  Sex: Male
  Weight: 102.7 kg

DRUGS (26)
  1. CASODEX [Suspect]
     Indication: PROSTATE CANCER
     Route: 048
     Dates: start: 20050101
  2. TAXOTERE [Suspect]
     Route: 065
     Dates: end: 20090518
  3. IMATINIB MESYLATE [Suspect]
     Indication: PROSTATE CANCER
     Route: 065
  4. IMC-A12 [Suspect]
     Indication: PROSTATE CANCER METASTATIC
     Route: 065
     Dates: start: 20090914
  5. IMC-1121B [Suspect]
     Indication: PROSTATE CANCER METASTATIC
     Route: 065
  6. MITOXANTRONE [Suspect]
     Indication: PROSTATE CANCER METASTATIC
     Route: 065
     Dates: start: 20090914
  7. PREDNISONE [Suspect]
     Indication: PROSTATE CANCER METASTATIC
     Route: 048
     Dates: start: 20090914
  8. BRACHYTHERAPY [Suspect]
     Indication: PROSTATE CANCER
     Route: 065
  9. RADIATION THERAPY [Suspect]
     Indication: PALLIATIVE CARE
     Route: 065
     Dates: start: 20080101
  10. NEXIUM [Concomitant]
     Indication: GASTROOESOPHAGEAL REFLUX DISEASE
     Route: 048
     Dates: start: 20020101
  11. ZOLADEX [Concomitant]
     Indication: PROSTATE CANCER
     Route: 058
     Dates: start: 20031031
  12. METOPROLOL TARTRATE [Concomitant]
     Indication: HYPERTENSION
     Route: 048
     Dates: start: 20090717
  13. ASPIRIN [Concomitant]
     Route: 048
     Dates: start: 20030101, end: 20090812
  14. DOCUSATE [Concomitant]
     Indication: CONSTIPATION
     Route: 048
     Dates: start: 20090501
  15. ZOFRAN [Concomitant]
     Route: 048
     Dates: start: 20090812
  16. OXYCODONE HCL [Concomitant]
     Indication: PAIN
     Route: 048
     Dates: start: 20090601
  17. POTASSIUM CHLORIDE [Concomitant]
     Indication: HYPOKALAEMIA
     Route: 048
     Dates: start: 20090501, end: 20091221
  18. MIRALAX [Concomitant]
     Dosage: QD
     Dates: start: 20090812
  19. OXYCONTIN [Concomitant]
     Indication: PAIN
     Route: 048
     Dates: start: 20090914
  20. LOVENOX [Concomitant]
     Indication: PULMONARY EMBOLISM
     Route: 058
     Dates: start: 20090812, end: 20091109
  21. LOVENOX [Concomitant]
     Indication: DEEP VEIN THROMBOSIS
     Route: 058
     Dates: start: 20090812, end: 20091109
  22. LOVENOX [Concomitant]
     Route: 058
     Dates: start: 20091109, end: 20091130
  23. LOVENOX [Concomitant]
     Route: 058
     Dates: start: 20091109, end: 20091130
  24. LOVENOX [Concomitant]
     Route: 058
     Dates: start: 20091130
  25. LOVENOX [Concomitant]
     Route: 058
     Dates: start: 20091130
  26. IMODIUM [Concomitant]
     Indication: DIARRHOEA
     Dosage: AS REQUIRED
     Route: 048
     Dates: start: 20100105

REACTIONS (3)
  - DEHYDRATION [None]
  - DIARRHOEA [None]
  - HYPOKALAEMIA [None]
